FAERS Safety Report 22524443 (Version 3)
Quarter: 2024Q3

REPORT INFORMATION
  Report Type: Report from Study
  Country: US (occurrence: US)
  Receive Date: 20230606
  Receipt Date: 20240723
  Transmission Date: 20241016
  Serious: Yes (Disabling)
  Sender: EMD SERONO INC
  Company Number: US-Merck Healthcare KGaA-9373352

PATIENT
  Age: 65 Year
  Sex: Male

DRUGS (1)
  1. REBIF [Suspect]
     Active Substance: INTERFERON BETA-1A
     Indication: Multiple sclerosis
     Route: 058
     Dates: start: 20111014, end: 20240401

REACTIONS (4)
  - Back injury [Unknown]
  - Spinal stenosis [Not Recovered/Not Resolved]
  - Sacroiliac joint dysfunction [Not Recovered/Not Resolved]
  - Product administration interrupted [Recovered/Resolved]

NARRATIVE: CASE EVENT DATE: 20240401
